FAERS Safety Report 16920339 (Version 1)
Quarter: 2019Q4

REPORT INFORMATION
  Report Type: Spontaneous
  Country: US (occurrence: US)
  Receive Date: 20191015
  Receipt Date: 20191015
  Transmission Date: 20200122
  Serious: Yes (Hospitalization)
  Sender: FDA-Public Use
  Company Number: None

PATIENT
  Age: 41 Year
  Sex: Female
  Weight: 86.4 kg

DRUGS (6)
  1. AIMOVIG [Suspect]
     Active Substance: ERENUMAB-AOOE
     Indication: MIGRAINE
     Dosage: ?          QUANTITY:1 INJECTION(S);OTHER FREQUENCY:ONCE A MONTH;?
     Route: 058
     Dates: start: 20190605, end: 20191003
  2. LATANOPROST. [Concomitant]
     Active Substance: LATANOPROST
  3. PEPCID [Concomitant]
     Active Substance: FAMOTIDINE
  4. LUNESTA [Concomitant]
     Active Substance: ESZOPICLONE
  5. MAXALT [Concomitant]
     Active Substance: RIZATRIPTAN BENZOATE
  6. NORETHINDRONE. [Concomitant]
     Active Substance: NORETHINDRONE

REACTIONS (2)
  - Vertigo [None]
  - Fall [None]

NARRATIVE: CASE EVENT DATE: 20191011
